FAERS Safety Report 18730322 (Version 2)
Quarter: 2021Q2

REPORT INFORMATION
  Report Type: Spontaneous
  Country: US (occurrence: US)
  Receive Date: 20210112
  Receipt Date: 20210412
  Transmission Date: 20210717
  Serious: No
  Sender: FDA-Public Use
  Company Number: US-INTRA-CELLULAR THERAPIES, INC.-2020ICT00161

PATIENT
  Sex: Male

DRUGS (3)
  1. SEROQUEL [Suspect]
     Active Substance: QUETIAPINE FUMARATE
  2. ZYPREXA [Suspect]
     Active Substance: OLANZAPINE
  3. CAPLYTA [Suspect]
     Active Substance: LUMATEPERONE
     Indication: SCHIZOPHRENIA
     Dosage: 42 MG, 1X/DAY
     Route: 048

REACTIONS (4)
  - Burning sensation [Recovering/Resolving]
  - Feeling hot [Unknown]
  - Weight increased [Unknown]
  - Hypersensitivity [Recovering/Resolving]
